FAERS Safety Report 9668124 (Version 3)
Quarter: 2014Q1

REPORT INFORMATION
  Report Type: Report from Study
  Country: JP (occurrence: JP)
  Receive Date: 20131104
  Receipt Date: 20140203
  Transmission Date: 20141002
  Serious: Yes (Death)
  Sender: FDA-Public Use
  Company Number: JP-UCBSA-102045

PATIENT
  Age: 73 Year
  Sex: Female

DRUGS (15)
  1. E KEPPRA [Suspect]
     Indication: PARTIAL SEIZURES WITH SECONDARY GENERALISATION
     Route: 048
     Dates: start: 20130407, end: 20130912
  2. NORVASC [Concomitant]
     Route: 048
     Dates: end: 20130912
  3. YOKUKANSAN [Concomitant]
     Route: 048
     Dates: end: 20130527
  4. DEPAKENE [Concomitant]
     Route: 048
     Dates: end: 20130912
  5. DECADRON [Concomitant]
     Route: 048
     Dates: end: 20130912
  6. MUCOSTA [Concomitant]
     Route: 048
     Dates: end: 20130912
  7. ISOBIDE [Concomitant]
     Route: 048
     Dates: end: 20130912
  8. PANTOSIN [Concomitant]
     Route: 048
     Dates: end: 20130912
  9. MAGNESIUM OXIDE [Concomitant]
     Route: 048
     Dates: end: 20130912
  10. TEMODAL [Concomitant]
     Route: 048
     Dates: start: 20130513, end: 20130517
  11. TEMODAL [Concomitant]
     Route: 048
     Dates: start: 20130708, end: 20130712
  12. TEMODAL [Concomitant]
     Route: 048
     Dates: start: 20130805, end: 20130809
  13. NASEA-OD [Concomitant]
     Route: 048
     Dates: start: 20130708, end: 20130712
  14. NASEA-OD [Concomitant]
     Route: 048
     Dates: start: 20130805, end: 20130809
  15. SYMMETREL [Concomitant]
     Route: 048
     Dates: start: 20130610, end: 20130912

REACTIONS (1)
  - Brain neoplasm malignant [Fatal]
